FAERS Safety Report 5129202-6 (Version None)
Quarter: 2006Q4

REPORT INFORMATION
  Report Type: 
  Country: None (occurrence: None)
  Receive Date: 20061018
  Receipt Date: 20051028
  Transmission Date: 20070319
  Serious: Yes (Hospitalization)
  Sender: FDA-Public Use
  Company Number: PHHO2005JP17189

PATIENT
  Age: 76 Year
  Sex: Female
  Weight: 50 kg

DRUGS (9)
  1. DIOVAN [Suspect]
     Indication: HYPERTENSION
     Dosage: 120 MG, QD
     Route: 048
     Dates: start: 20060801
  2. DIOVAN [Suspect]
     Dosage: 80 MG, QD
     Route: 048
     Dates: start: 20030730
  3. LUPRAC [Suspect]
     Indication: OEDEMA
     Dosage: 4 MG, QD
     Route: 048
     Dates: start: 20050126
  4. VASOLAN [Suspect]
     Indication: ATRIAL FIBRILLATION
     Dosage: 120 MG, QD
     Route: 048
     Dates: start: 20010514
  5. WARFARIN SODIUM [Concomitant]
  6. DIGOXIN [Concomitant]
  7. GASMOTIN [Concomitant]
     Indication: REFLUX OESOPHAGITIS
  8. LANSOPRAZOLE [Concomitant]
     Indication: REFLUX OESOPHAGITIS
  9. ISOSORBIDE MONONITRATE [Concomitant]
     Indication: VASODILATION PROCEDURE

REACTIONS (12)
  - ABDOMINAL PAIN [None]
  - ANAEMIA [None]
  - ASPARTATE AMINOTRANSFERASE INCREASED [None]
  - BLOOD POTASSIUM INCREASED [None]
  - BLOOD URIC ACID INCREASED [None]
  - CONSTIPATION [None]
  - HYPERGLYCAEMIA [None]
  - LIVER DISORDER [None]
  - OEDEMA [None]
  - RENAL CELL CARCINOMA STAGE UNSPECIFIED [None]
  - SURGERY [None]
  - VOMITING [None]
